FAERS Safety Report 11952399 (Version 3)
Quarter: 2016Q1

REPORT INFORMATION
  Report Type: Report from Study
  Country: US (occurrence: US)
  Receive Date: 20160126
  Receipt Date: 20160304
  Transmission Date: 20160526
  Serious: Yes (Other)
  Sender: FDA-Public Use
  Company Number: US-GILEAD-2016-0194420

PATIENT
  Age: 67 Year
  Sex: Female

DRUGS (4)
  1. AMBRISENTAN [Suspect]
     Active Substance: AMBRISENTAN
     Dosage: 5 MG, QD
     Route: 065
  2. AMBRISENTAN [Suspect]
     Active Substance: AMBRISENTAN
     Indication: PRODUCT USED FOR UNKNOWN INDICATION
     Dosage: 10 MG, QD
     Route: 065
     Dates: start: 20140804
  3. REVATIO [Suspect]
     Active Substance: SILDENAFIL CITRATE
     Indication: PRODUCT USED FOR UNKNOWN INDICATION
     Route: 065
  4. SILDENAFIL. [Suspect]
     Active Substance: SILDENAFIL
     Indication: PRODUCT USED FOR UNKNOWN INDICATION
     Route: 065

REACTIONS (13)
  - Anxiety [Not Recovered/Not Resolved]
  - Cough [Recovering/Resolving]
  - Nausea [Recovering/Resolving]
  - Oxygen saturation decreased [Recovered/Resolved]
  - Hypotension [Unknown]
  - Pulmonary arterial pressure increased [Unknown]
  - Pulmonary arterial pressure abnormal [Unknown]
  - Vomiting [Recovering/Resolving]
  - Pulmonary arterial hypertension [Unknown]
  - Drug ineffective [Unknown]
  - Irritable bowel syndrome [Not Recovered/Not Resolved]
  - Heart rate irregular [Unknown]
  - Dizziness [Recovered/Resolved]
